FAERS Safety Report 6843543-3 (Version None)
Quarter: 2010Q3

REPORT INFORMATION
  Report Type: 
  Country: None (occurrence: None)
  Receive Date: 20100715
  Receipt Date: 20100708
  Transmission Date: 20110219
  Serious: Yes (Hospitalization, Disabling)
  Sender: FDA-Public Use
  Company Number: JP-BAYER-200911160BYL

PATIENT
  Age: 84 Year
  Sex: Female

DRUGS (21)
  1. NEXAVAR [Suspect]
     Indication: RENAL CELL CARCINOMA
     Dosage: UNIT DOSE: 200 MG
     Route: 048
     Dates: start: 20080927, end: 20081003
  2. NEXAVAR [Suspect]
     Dosage: UNIT DOSE: 200 MG
     Route: 048
     Dates: start: 20081004, end: 20081012
  3. NEXAVAR [Suspect]
     Dosage: UNIT DOSE: 200 MG
     Route: 048
     Dates: start: 20081012, end: 20081025
  4. NEXAVAR [Suspect]
     Dosage: UNIT DOSE: 200 MG
     Route: 048
     Dates: start: 20081030, end: 20081112
  5. NEXAVAR [Suspect]
     Dosage: TOTAL DAILY DOSE: 400 MG  UNIT DOSE: 200 MG
     Route: 048
     Dates: start: 20090420, end: 20090526
  6. NEXAVAR [Suspect]
     Dosage: UNIT DOSE: 200 MG
     Route: 048
     Dates: start: 20090527
  7. NEXAVAR [Suspect]
     Dosage: UNIT DOSE: 200 MG
     Route: 048
     Dates: start: 20081113, end: 20090408
  8. OLMETEC [Concomitant]
     Route: 048
     Dates: start: 20080101
  9. CIMETIPARL [Concomitant]
     Route: 048
     Dates: start: 20080524
  10. NORVASC [Concomitant]
     Route: 048
     Dates: start: 20080924, end: 20081209
  11. PASTARON [Concomitant]
     Indication: PROPHYLAXIS
     Route: 061
     Dates: start: 20080924
  12. NAUZELIN [Concomitant]
     Route: 048
     Dates: start: 20080924
  13. MECALMIN [Concomitant]
     Route: 048
     Dates: start: 20080924
  14. GASLON N_OD [Concomitant]
     Route: 048
     Dates: start: 20080924
  15. CHOREI-TO [Concomitant]
     Indication: DYSURIA
     Route: 048
     Dates: start: 20080925
  16. CHOREI-TO [Concomitant]
     Route: 048
     Dates: start: 20081112
  17. LIPITOR [Concomitant]
     Indication: HYPERLIPIDAEMIA
     Route: 048
     Dates: start: 20081029
  18. DEXALTIN [Concomitant]
     Route: 049
     Dates: start: 20081223
  19. CORINAEL L [Concomitant]
     Route: 048
     Dates: start: 20081210
  20. CALBLOCK [Concomitant]
     Route: 048
     Dates: start: 20081210
  21. PROTECADIN [Concomitant]
     Route: 048
     Dates: start: 20081203

REACTIONS (4)
  - CEREBRAL HAEMORRHAGE [None]
  - GLOSSITIS [None]
  - RASH [None]
  - STOMATITIS [None]
